FAERS Safety Report 6636334-X (Version None)
Quarter: 2010Q1

REPORT INFORMATION
  Report Type: 
  Country: None (occurrence: None)
  Receive Date: 20100316
  Receipt Date: 20100304
  Transmission Date: 20100710
  Serious: Yes (Hospitalization, Other)
  Sender: FDA-Public Use
  Company Number: US-ROCHE-645183

PATIENT
  Sex: Male
  Weight: 77.1 kg

DRUGS (4)
  1. ACCUTANE [Suspect]
     Indication: ACNE
     Route: 065
     Dates: start: 19970901, end: 19981201
  2. ACCUTANE [Suspect]
     Route: 065
     Dates: start: 19980802, end: 19981201
  3. ACCUTANE [Suspect]
     Route: 065
     Dates: start: 19991123, end: 20000201
  4. ACCUTANE [Suspect]
     Route: 065
     Dates: start: 20000906, end: 20001127

REACTIONS (12)
  - ACNE [None]
  - BACK PAIN [None]
  - CHEILITIS [None]
  - CROHN'S DISEASE [None]
  - DEPRESSION [None]
  - GASTROOESOPHAGEAL REFLUX DISEASE [None]
  - INFLAMMATORY BOWEL DISEASE [None]
  - INSOMNIA [None]
  - LIP DRY [None]
  - NECK INJURY [None]
  - NEPHROLITHIASIS [None]
  - RECTAL ABSCESS [None]
